FAERS Safety Report 7537575-X (Version None)
Quarter: 2011Q2

REPORT INFORMATION
  Report Type: 
  Country: None (occurrence: None)
  Receive Date: 20110609
  Receipt Date: 20070410
  Transmission Date: 20111010
  Serious: Yes (Death, Hospitalization)
  Sender: FDA-Public Use
  Company Number: PHHO2007TH06188

PATIENT
  Sex: Female

DRUGS (1)
  1. GLEEVEC [Suspect]
     Indication: CHRONIC MYELOID LEUKAEMIA
     Dosage: 400 MG, QD
     Route: 048
     Dates: start: 20060925

REACTIONS (3)
  - CEREBROVASCULAR ACCIDENT [None]
  - BLAST CRISIS IN MYELOGENOUS LEUKAEMIA [None]
  - BRAIN HERNIATION [None]
